FAERS Safety Report 8905487 (Version 1)
Quarter: 2012Q4

REPORT INFORMATION
  Report Type: 
  Country: GB (occurrence: GB)
  Receive Date: 20121113
  Receipt Date: 20121113
  Transmission Date: 20130627
  Serious: Yes (Other)
  Sender: FDA-Public Use
  Company Number: GB-SHIRE-ALL1-2012-05502

PATIENT
  Age: 41 Year
  Sex: Male

DRUGS (2)
  1. MEZAVANT [Suspect]
     Indication: COLITIS ULCERATIVE
     Dosage: UNK, Unknown
     Route: 048
     Dates: end: 2012
  2. MEZAVANT [Suspect]
     Dosage: UNK, Unknown
     Route: 048
     Dates: start: 2012

REACTIONS (2)
  - Sexual dysfunction [Unknown]
  - Erectile dysfunction [Unknown]
